FAERS Safety Report 6823106-6 (Version None)
Quarter: 2010Q3

REPORT INFORMATION
  Report Type: 
  Country: None (occurrence: None)
  Receive Date: 20100708
  Receipt Date: 20100628
  Transmission Date: 20110219
  Serious: Yes (Death, Hospitalization)
  Sender: FDA-Public Use
  Company Number: A0867927A

PATIENT
  Age: 50 Year
  Sex: Female

DRUGS (1)
  1. ARZERRA [Suspect]
     Route: 042

REACTIONS (1)
  - NEUTROPENIA [None]
